FAERS Safety Report 11249497 (Version 2)
Quarter: 2016Q1

REPORT INFORMATION
  Report Type: Spontaneous
  Country: DK (occurrence: DK)
  Receive Date: 20150708
  Receipt Date: 20160201
  Transmission Date: 20160525
  Serious: Yes (Hospitalization)
  Sender: FDA-Public Use
  Company Number: DK-BRISTOL-MYERS SQUIBB COMPANY-BMS-2015-043325

PATIENT
  Age: 75 Year
  Sex: Female

DRUGS (10)
  1. ELIQUIS [Suspect]
     Active Substance: APIXABAN
     Indication: CEREBROVASCULAR ACCIDENT PROPHYLAXIS
     Dosage: STYRKE: 5 MG.
     Route: 048
     Dates: start: 2012
  2. TRADOLAN [Concomitant]
     Active Substance: TRAMADOL
     Indication: PAIN
     Route: 065
  3. PHENERGAN [Concomitant]
     Active Substance: PROMETHAZINE HYDROCHLORIDE
     Indication: ANXIETY
     Route: 065
  4. VENLAFAXIN BLUEFISH [Concomitant]
     Active Substance: VENLAFAXINE HYDROCHLORIDE
     Indication: DEPRESSION
     Route: 065
  5. SPIRIVA [Concomitant]
     Active Substance: TIOTROPIUM BROMIDE MONOHYDRATE
     Indication: CHRONIC OBSTRUCTIVE PULMONARY DISEASE
     Route: 065
  6. SERETIDE [Concomitant]
     Active Substance: FLUTICASONE FUROATE\SALMETEROL XINAFOATE
     Indication: CHRONIC OBSTRUCTIVE PULMONARY DISEASE
     Route: 065
  7. CORODIL                            /00042901/ [Concomitant]
     Indication: HYPERTENSION
     Route: 065
  8. OXAPAX [Concomitant]
     Active Substance: OXAZEPAM
     Indication: ANXIETY
     Route: 065
  9. ELIQUIS [Suspect]
     Active Substance: APIXABAN
     Dosage: STYRKE: 5 MG.
     Route: 048
     Dates: start: 2012, end: 20150609
  10. KALEORID [Concomitant]
     Active Substance: POTASSIUM CHLORIDE
     Indication: ELECTROLYTE SUBSTITUTION THERAPY
     Route: 065

REACTIONS (2)
  - Anaemia [Unknown]
  - Chronic obstructive pulmonary disease [Unknown]

NARRATIVE: CASE EVENT DATE: 201506
